FAERS Safety Report 8011127-X (Version None)
Quarter: 2011Q4

REPORT INFORMATION
  Report Type: 
  Country: None (occurrence: None)
  Receive Date: 20111222
  Receipt Date: 20111216
  Transmission Date: 20120403
  Serious: Yes (Life-Threatening, Hospitalization)
  Sender: FDA-Public Use
  Company Number: AUR-APL-2011-06166

PATIENT
  Age: 68 Year
  Sex: Male

DRUGS (9)
  1. AMLODIPINE [Suspect]
     Indication: HYPERTENSION
     Dosage: 5 MG (5 MG, 1 IN 1 D),ORAL
     Route: 048
     Dates: start: 20111114
  2. RAMIPRIL [Concomitant]
  3. BISOPROLOL FUMARATE [Concomitant]
  4. OMACOR [Concomitant]
  5. TRAMADOL HCL [Concomitant]
  6. ASPIRIN [Concomitant]
  7. PRAVASTATIN [Concomitant]
  8. DIETHYLSTILBESTROL [Suspect]
     Indication: PRODUCT USED FOR UNKNOWN INDICATION
     Dosage: 1 MG (1 MG,L IN 1 D),ORAL
     Route: 048
     Dates: start: 20110601
  9. LANSOPRAZOLE [Concomitant]

REACTIONS (2)
  - EMBOLISM [None]
  - MYALGIA [None]
